FAERS Safety Report 6271994-7 (Version None)
Quarter: 2009Q3

REPORT INFORMATION
  Report Type: 
  Country: None (occurrence: None)
  Receive Date: 20090715
  Receipt Date: 20090701
  Transmission Date: 20100115
  Serious: Yes (Life-Threatening, Hospitalization, Disabling)
  Sender: FDA-Public Use
  Company Number: SPV1-2009-01248

PATIENT
  Age: 76 Year
  Sex: Female
  Weight: 76.2 kg

DRUGS (17)
  1. LIALDA [Suspect]
     Indication: COLITIS ULCERATIVE
     Dosage: 4.8 G, 1X/DAY:QD AM, ORAL
     Route: 048
     Dates: start: 20090408, end: 20090601
  2. ARIMIDEX (ANASTROZOLE) TABLET [Concomitant]
  3. BUMEX (BUMETANIDE) TABLET [Concomitant]
  4. CLONIDINE (CLONIDINE) UNKNOWN [Concomitant]
  5. LEVOTHYROXINE (LEVOTHYROXINE) UNKNOWN [Concomitant]
  6. LISINOPRIL [Concomitant]
  7. LOVASTATIN (LOVASTATIN) UNKNOWN [Concomitant]
  8. METOPROLOL SUCCINATE [Concomitant]
  9. NAPROXEN (NAPROXEN) UNKNOWN [Concomitant]
  10. PREDNISONE TAB [Concomitant]
  11. MULTIVITAMIN /00831701/ (VITAMINS NOS) UNKNOWN [Concomitant]
  12. CALCIUM (CALCIUM) UNKNOWN [Concomitant]
  13. MAGNESIUM (MAGNESIUM) CAPSULE [Concomitant]
  14. BABY ASPIRIN (ACETYLSALICYLIC ACID) UNKNOWN [Concomitant]
  15. OMEGA 3 /01334101/ (FISH OIL) [Concomitant]
  16. AMLODIPINE [Concomitant]
  17. SLOW FE (FERROUS SULFATE) TABLET [Concomitant]

REACTIONS (11)
  - BLOOD CREATININE INCREASED [None]
  - BRAIN NATRIURETIC PEPTIDE [None]
  - CHEST PAIN [None]
  - DEMYELINATING POLYNEUROPATHY [None]
  - DYSPNOEA [None]
  - FATIGUE [None]
  - GUILLAIN-BARRE SYNDROME [None]
  - HAEMATOCRIT DECREASED [None]
  - HAEMOGLOBIN DECREASED [None]
  - OEDEMA PERIPHERAL [None]
  - STRESS [None]
